FAERS Safety Report 25435249 (Version 7)
Quarter: 2025Q4

REPORT INFORMATION
  Report Type: Report from Study
  Country: US (occurrence: US)
  Receive Date: 20250613
  Receipt Date: 20251106
  Transmission Date: 20260117
  Serious: Yes (Hospitalization)
  Sender: MALLINCKRODT
  Company Number: US-MALLINCKRODT-MNK202503404

PATIENT
  Sex: Female

DRUGS (6)
  1. CORTICOTROPIN [Suspect]
     Active Substance: CORTICOTROPIN
     Indication: Rheumatoid arthritis
     Dosage: UNKNOWN
  2. CORTICOTROPIN [Suspect]
     Active Substance: CORTICOTROPIN
     Indication: Rheumatoid arthritis
  3. CORTICOTROPIN [Suspect]
     Active Substance: CORTICOTROPIN
     Indication: Meningioma benign
  4. RINVOQ [Suspect]
     Active Substance: UPADACITINIB
     Indication: Product used for unknown indication
     Dosage: UNKNOWN
  5. TYLENOL [Concomitant]
     Active Substance: ACETAMINOPHEN
     Dosage: UNKNOWN
  6. IBUPROFEN [Concomitant]
     Active Substance: IBUPROFEN
     Dosage: UNKNOWN

REACTIONS (10)
  - Pneumonia [Unknown]
  - Influenza [Unknown]
  - Pain [Recovering/Resolving]
  - Vertigo [Unknown]
  - Injection site bruising [Unknown]
  - Injection site discharge [Unknown]
  - Injection site pain [Recovered/Resolved]
  - Underdose [Unknown]
  - Product dose omission issue [Unknown]
  - Inappropriate schedule of product administration [Unknown]

NARRATIVE: CASE EVENT DATE: 20250101
